FAERS Safety Report 22890560 (Version 2)
Quarter: 2023Q4

REPORT INFORMATION
  Report Type: Report from Study
  Country: US (occurrence: US)
  Receive Date: 20230831
  Receipt Date: 20231027
  Transmission Date: 20240110
  Serious: No
  Sender: FDA-Public Use
  Company Number: US-ACADIA PHARMACEUTICALS INC.-ACA-2023-PIM-003441

PATIENT
  Sex: Male

DRUGS (11)
  1. NUPLAZID [Suspect]
     Active Substance: PIMAVANSERIN TARTRATE
     Indication: Parkinson^s disease psychosis
     Dosage: 34 MILLIGRAM, QD
     Route: 048
     Dates: start: 202308, end: 20230913
  2. STOOL SOFTENER (DOCUSATE) [Concomitant]
     Active Substance: DOCUSATE
  3. MIDODRINE [Concomitant]
     Active Substance: MIDODRINE
  4. TYLENOL [Concomitant]
     Active Substance: ACETAMINOPHEN
  5. RYTARY [Concomitant]
     Active Substance: CARBIDOPA\LEVODOPA
  6. LUMIGAN [Concomitant]
     Active Substance: BIMATOPROST
  7. DIAZEPAM [Concomitant]
     Active Substance: DIAZEPAM
  8. CENTRUM FORTE [Concomitant]
  9. MIRALAX [Concomitant]
     Active Substance: POLYETHYLENE GLYCOL 3350
  10. DORZOLAMIDE [Concomitant]
     Active Substance: DORZOLAMIDE
  11. MELATONIN [Concomitant]
     Active Substance: MELATONIN

REACTIONS (2)
  - Abdominal pain upper [Recovered/Resolved]
  - Hallucination [Unknown]
